FAERS Safety Report 26186015 (Version 1)
Quarter: 2025Q4

REPORT INFORMATION
  Report Type: Report from Study
  Country: EU (occurrence: None)
  Receive Date: 20251222
  Receipt Date: 20251222
  Transmission Date: 20260117
  Serious: Yes (Congenital Anomaly)
  Sender: UCB
  Company Number: EU-UCBSA-2025080664

PATIENT

DRUGS (2)
  1. LEVETIRACETAM [Suspect]
     Active Substance: LEVETIRACETAM
     Indication: Product used for unknown indication
     Dosage: 2250 MILLIGRAM, DAILY
  2. PREGABALIN [Concomitant]
     Active Substance: PREGABALIN
     Indication: Product used for unknown indication
     Dosage: UNK

REACTIONS (3)
  - Trisomy 18 [Unknown]
  - Fallot^s tetralogy [Unknown]
  - Maternal exposure during pregnancy [Unknown]
